FAERS Safety Report 6731414-2 (Version None)
Quarter: 2010Q2

REPORT INFORMATION
  Report Type: 
  Country: None (occurrence: None)
  Receive Date: 20100518
  Receipt Date: 20100518
  Transmission Date: 20101027
  Serious: Yes (Hospitalization)
  Sender: FDA-Public Use
  Company Number: None

PATIENT
  Age: 87 Year
  Sex: Female
  Weight: 62.6 kg

DRUGS (1)
  1. HYDROCHLOROTHIAZIDE [Suspect]
     Indication: HYPERTENSION
     Dosage: 12.5 MG AM PO
     Route: 048
     Dates: start: 20090603, end: 20100415

REACTIONS (8)
  - ASTHENIA [None]
  - BLOOD CREATININE INCREASED [None]
  - FALL [None]
  - HYPOTENSION [None]
  - ORTHOSTATIC HYPOTENSION [None]
  - SINUS BRADYCARDIA [None]
  - SYNCOPE [None]
  - TROPONIN INCREASED [None]
